FAERS Safety Report 8190699-9 (Version None)
Quarter: 2012Q1

REPORT INFORMATION
  Report Type: 
  Country: None (occurrence: None)
  Receive Date: 20120307
  Receipt Date: 20120302
  Transmission Date: 20120608
  Serious: Yes (Death, Life-Threatening)
  Sender: FDA-Public Use
  Company Number: FR-ROCHE-1042187

PATIENT
  Sex: Female
  Weight: 67 kg

DRUGS (15)
  1. TEMOZOLOMIDE [Suspect]
     Dosage: D1 CYCLE2
     Dates: start: 20120209
  2. RAMIPRIL [Concomitant]
  3. METHYLPREDNISOLONE [Suspect]
  4. POTASSIUM CHLORIDE [Concomitant]
     Indication: HYPOKALAEMIA
     Route: 048
  5. PRAVASTATIN [Concomitant]
  6. TEMOZOLOMIDE [Suspect]
     Dates: start: 20120213, end: 20120213
  7. AVASTIN [Suspect]
     Indication: BRAIN NEOPLASM MALIGNANT
     Dates: start: 20120111, end: 20120208
  8. AVASTIN [Suspect]
     Dosage: D1 CYCLE2
     Dates: start: 20120209
  9. METHYLPREDNISOLONE [Suspect]
     Indication: PRODUCT USED FOR UNKNOWN INDICATION
     Route: 048
  10. NEXIUM [Concomitant]
     Route: 048
  11. LOVENOX [Concomitant]
  12. TEMOZOLOMIDE [Suspect]
     Indication: BRAIN NEOPLASM MALIGNANT
     Dates: start: 20120111
  13. LASIX [Concomitant]
  14. ACETAMINOPHEN [Concomitant]
     Route: 048
  15. ACTRAPID [Concomitant]
     Dosage: IF NECESSARY
     Route: 058

REACTIONS (8)
  - PLEURAL EFFUSION [None]
  - LARGE INTESTINE PERFORATION [None]
  - LUNG INFECTION [None]
  - PNEUMOPERITONEUM [None]
  - DEATH [None]
  - RENAL IMPAIRMENT [None]
  - DIVERTICULUM [None]
  - ASTHENIA [None]
